FAERS Safety Report 14673349 (Version 1)
Quarter: 2018Q1

REPORT INFORMATION
  Report Type: Spontaneous
  Country: US (occurrence: US)
  Receive Date: 20180322
  Receipt Date: 20180322
  Transmission Date: 20180509
  Serious: Yes (Hospitalization)
  Sender: FDA-Public Use
  Company Number: None

PATIENT
  Age: 49 Year
  Sex: Female

DRUGS (2)
  1. FREESTYLE [Concomitant]
  2. HUMIRA [Suspect]
     Active Substance: ADALIMUMAB
     Indication: RHEUMATOID ARTHRITIS
     Dosage: 0.8 ML EVERY 14 DAYS
     Route: 058
     Dates: start: 20161216

REACTIONS (4)
  - Bone disorder [None]
  - Drug dose omission [None]
  - Dry mouth [None]
  - Limb operation [None]

NARRATIVE: CASE EVENT DATE: 20180207
